FAERS Safety Report 9624893 (Version 1)
Quarter: 2013Q4

REPORT INFORMATION
  Report Type: Spontaneous
  Country: NL (occurrence: NL)
  Receive Date: 20131016
  Receipt Date: 20131016
  Transmission Date: 20140711
  Serious: Yes (Hospitalization, Other)
  Sender: FDA-Public Use
  Company Number: PHHY2013NL112932

PATIENT
  Age: 74 Year
  Sex: Female

DRUGS (4)
  1. METHOTREXATE [Suspect]
     Indication: NECROTISING SCLERITIS
     Dosage: 20 MG, PER WEEK
     Route: 048
     Dates: start: 2010
  2. PREDNISOLONE [Suspect]
     Indication: NECROTISING SCLERITIS
     Dosage: 1 MG/KG, PER DAY
     Route: 048
  3. PREDNISOLONE [Suspect]
     Dosage: 15 MG, PER DAY
  4. ADALIMUMAB [Suspect]
     Indication: NECROTISING SCLERITIS
     Dosage: 40 MG, PER WEEK
     Route: 058
     Dates: start: 201104

REACTIONS (14)
  - Cholestasis [Recovering/Resolving]
  - Histoplasmosis disseminated [Recovering/Resolving]
  - Hepatic infection fungal [Recovering/Resolving]
  - Histoplasmosis [Recovering/Resolving]
  - Malaise [Recovering/Resolving]
  - Pyrexia [Recovering/Resolving]
  - Weight decreased [Recovering/Resolving]
  - Night sweats [Recovering/Resolving]
  - Abdominal pain [Recovering/Resolving]
  - Dyspnoea [Recovering/Resolving]
  - Pleural effusion [Recovering/Resolving]
  - Haematochezia [Recovering/Resolving]
  - Large intestinal ulcer [Recovering/Resolving]
  - Drug ineffective [Unknown]
